FAERS Safety Report 20078366 (Version 1)
Quarter: 2021Q4

REPORT INFORMATION
  Report Type: Spontaneous
  Country: US (occurrence: US)
  Receive Date: 20211117
  Receipt Date: 20211117
  Transmission Date: 20220303
  Serious: No
  Sender: FDA-Public Use
  Company Number: US-SA-2019SA130917

PATIENT
  Age: 37 Year
  Sex: Female

DRUGS (1)
  1. DUPIXENT [Suspect]
     Active Substance: DUPILUMAB
     Indication: Dermatitis atopic
     Dosage: 300 MG, QD
     Route: 058
     Dates: start: 20190416

REACTIONS (5)
  - Erythema [Unknown]
  - Photopsia [Unknown]
  - Unevaluable event [Unknown]
  - Oral herpes [Unknown]
  - Product dose omission issue [Unknown]
